FAERS Safety Report 15007647 (Version 2)
Quarter: 2018Q4

REPORT INFORMATION
  Report Type: Spontaneous
  Country: AU (occurrence: AU)
  Receive Date: 20180613
  Receipt Date: 20181019
  Transmission Date: 20190204
  Serious: Yes (Death, Other)
  Sender: FDA-Public Use
  Company Number: AU-ASTRAZENECA-2018SE74758

PATIENT
  Sex: Male

DRUGS (1)
  1. BYDUREON [Suspect]
     Active Substance: EXENATIDE
     Dosage: 2 MG
     Route: 065
     Dates: start: 2018

REACTIONS (5)
  - Neoplasm malignant [Fatal]
  - Diabetic ketoacidosis [Unknown]
  - Blood glucose increased [Unknown]
  - Weight decreased [Unknown]
  - Metastases to pancreas [Unknown]
